FAERS Safety Report 4573850-9 (Version None)
Quarter: 2005Q1

REPORT INFORMATION
  Report Type: 
  Country: None (occurrence: None)
  Receive Date: 20050203
  Receipt Date: 20050125
  Transmission Date: 20050727
  Serious: Yes (Disabling)
  Sender: FDA-Public Use
  Company Number: 0104-2063

PATIENT
  Age: 40 Year
  Sex: Male
  Weight: 81.6475 kg

DRUGS (2)
  1. ADVICOR [Suspect]
     Indication: HIGH DENSITY LIPOPROTEIN DECREASED
     Dosage: 1 TABLET(S) QHS PO
     Route: 048
     Dates: start: 20020101, end: 20041231
  2. ADVICOR [Suspect]
     Indication: LOW DENSITY LIPOPROTEIN INCREASED
     Dosage: 1 TABLET(S) QHS PO
     Route: 048
     Dates: start: 20020101, end: 20041231

REACTIONS (6)
  - ACTIVITIES OF DAILY LIVING IMPAIRED [None]
  - ARTHRALGIA [None]
  - DIFFICULTY IN WALKING [None]
  - INADEQUATE ANALGESIA [None]
  - JOINT SWELLING [None]
  - OEDEMA PERIPHERAL [None]
